FAERS Safety Report 5706259-2 (Version None)
Quarter: 2008Q2

REPORT INFORMATION
  Report Type: 
  Country: None (occurrence: None)
  Receive Date: 20080415
  Receipt Date: 20080408
  Transmission Date: 20081010
  Serious: Yes (Hospitalization)
  Sender: FDA-Public Use
  Company Number: US-SANOFI-SYNTHELABO-F01200601387

PATIENT
  Sex: Female
  Weight: 75.3 kg

DRUGS (13)
  1. PLAVIX [Concomitant]
     Dates: start: 20060525
  2. ASPIRIN [Concomitant]
     Dates: start: 20060525
  3. MULTI-VITAMIN [Concomitant]
  4. TOPROL-XL [Concomitant]
  5. ALBUTEROL [Concomitant]
  6. CA/MG OR PLACEBO [Suspect]
     Route: 042
     Dates: start: 20060516, end: 20060516
  7. VYTORIN [Concomitant]
  8. LUNESTA [Concomitant]
  9. BEVACIZUMAB [Suspect]
     Route: 042
     Dates: start: 20060516, end: 20060516
  10. LEUCOVORIN CALCIUM [Suspect]
     Route: 042
     Dates: start: 20060516, end: 20060516
  11. FLUOROURACIL [Suspect]
     Route: 042
     Dates: start: 20060515, end: 20060516
  12. OXALIPLATIN [Suspect]
     Indication: COLORECTAL CANCER METASTATIC
     Route: 042
     Dates: start: 20060418, end: 20060418
  13. AMBIEN [Concomitant]

REACTIONS (1)
  - CEREBRAL ISCHAEMIA [None]
